FAERS Safety Report 6764661-4 (Version None)
Quarter: 2010Q2

REPORT INFORMATION
  Report Type: 
  Country: None (occurrence: None)
  Receive Date: 20100609
  Receipt Date: 20100426
  Transmission Date: 20101027
  Serious: No
  Sender: FDA-Public Use
  Company Number: 2010010045

PATIENT
  Age: 5 Year
  Sex: Male

DRUGS (1)
  1. CHILDREN'S ZYRTEC ALLERGY [Suspect]
     Indication: HYPERSENSITIVITY
     Dosage: 1 TEASPOON - TWICE WITHIN AN HOUR,ORAL
     Route: 048

REACTIONS (1)
  - OVERDOSE [None]
